FAERS Safety Report 9607415 (Version 1)
Quarter: 2013Q4

REPORT INFORMATION
  Report Type: Spontaneous
  Country: US (occurrence: None)
  Receive Date: 20131007
  Receipt Date: 20131007
  Transmission Date: 20140711
  Serious: Yes (Disabling, Other)
  Sender: FDA-Public Use
  Company Number: None

PATIENT
  Age: 51 Year
  Sex: Female
  Weight: 44 kg

DRUGS (1)
  1. LAMICTAL [Suspect]
     Route: 048

REACTIONS (9)
  - Crying [None]
  - Suicidal ideation [None]
  - Contusion [None]
  - Blister [None]
  - Rash [None]
  - Fatigue [None]
  - Diplopia [None]
  - Dysphemia [None]
  - Lymph node abscess [None]
